FAERS Safety Report 4319586-0 (Version None)
Quarter: 2004Q1

REPORT INFORMATION
  Report Type: 
  Country: None (occurrence: None)
  Receive Date: 20040319
  Receipt Date: 20040310
  Transmission Date: 20041129
  Serious: Yes (Hospitalization)
  Sender: FDA-Public Use
  Company Number: FR-ROCHE-361563

PATIENT
  Age: 56 Year
  Sex: Male

DRUGS (9)
  1. FUZEON [Suspect]
     Indication: HIV INFECTION
     Route: 058
     Dates: start: 20030601
  2. VIREAD [Suspect]
     Indication: HIV INFECTION
     Route: 048
     Dates: start: 20030601
  3. VIRAMUNE [Suspect]
     Indication: HIV INFECTION
     Route: 048
     Dates: start: 20030601
  4. NORVIR [Suspect]
     Indication: HIV INFECTION
     Route: 048
     Dates: start: 19970609
  5. AGENERASE [Suspect]
     Indication: HIV INFECTION
     Route: 048
     Dates: start: 20030601
  6. EPIVIR [Suspect]
     Indication: HIV INFECTION
     Route: 048
     Dates: start: 19960828
  7. LEVOCARNIL [Concomitant]
  8. CORTANCYL [Concomitant]
     Indication: MYOSITIS
     Dates: end: 20040215
  9. PREVISCAN [Concomitant]
     Dates: end: 20040215

REACTIONS (3)
  - ARTHRALGIA [None]
  - DYSPNOEA EXERTIONAL [None]
  - INTERSTITIAL LUNG DISEASE [None]
